FAERS Safety Report 14686231 (Version 1)
Quarter: 2018Q1

REPORT INFORMATION
  Report Type: Spontaneous
  Country: US (occurrence: US)
  Receive Date: 20180326
  Receipt Date: 20180326
  Transmission Date: 20180509
  Serious: Yes (Disabling)
  Sender: FDA-Public Use
  Company Number: None

PATIENT
  Age: 53 Year
  Sex: Female
  Weight: 76.5 kg

DRUGS (3)
  1. WP THYROID [Concomitant]
     Active Substance: THYROID, PORCINE
  2. SYSTANE ULTRA [Suspect]
     Active Substance: POLYETHYLENE GLYCOL 400\PROPYLENE GLYCOL
     Indication: DRY EYE
     Dosage: ?          QUANTITY:1 DROP(S);?
     Route: 047
  3. VITAMIN SUPPLEMENTS [Concomitant]
     Active Substance: VITAMINS

REACTIONS (2)
  - Vision blurred [None]
  - Diplopia [None]

NARRATIVE: CASE EVENT DATE: 20171211
